FAERS Safety Report 23052375 (Version 2)
Quarter: 2023Q4

REPORT INFORMATION
  Report Type: Spontaneous
  Country: US (occurrence: US)
  Receive Date: 20231011
  Receipt Date: 20231017
  Transmission Date: 20240110
  Serious: No
  Sender: FDA-Public Use
  Company Number: US-SANOFI-01788186

PATIENT
  Age: 51 Year
  Sex: Female

DRUGS (1)
  1. DUPIXENT [Suspect]
     Active Substance: DUPILUMAB
     Indication: Eczema
     Dosage: 300 MG, QOW; 7 TO 8- MONTHS
     Dates: start: 2023

REACTIONS (8)
  - Dermatitis [Not Recovered/Not Resolved]
  - Rash macular [Unknown]
  - Dysphonia [Unknown]
  - COVID-19 [Unknown]
  - Hypersensitivity [Unknown]
  - Eczema [Unknown]
  - Rash [Unknown]
  - Injection site pain [Unknown]

NARRATIVE: CASE EVENT DATE: 20230101
